FAERS Safety Report 19242969 (Version 4)
Quarter: 2021Q3

REPORT INFORMATION
  Report Type: Report from Study
  Country: US (occurrence: US)
  Receive Date: 20210511
  Receipt Date: 20210814
  Transmission Date: 20211014
  Serious: No
  Sender: FDA-Public Use
  Company Number: NVSC2021US103287

PATIENT
  Age: 58 Year
  Sex: Female

DRUGS (4)
  1. COSENTYX [Suspect]
     Active Substance: SECUKINUMAB
     Route: 058
  2. COSENTYX [Suspect]
     Active Substance: SECUKINUMAB
     Indication: PSORIASIS
     Dosage: 300 MG, ONCE WEEKLY FOR 5 WEEKS, THEN ONCE EVERY 4 WEEKS
     Route: 058
  3. COSENTYX [Suspect]
     Active Substance: SECUKINUMAB
     Route: 058
  4. COSENTYX [Suspect]
     Active Substance: SECUKINUMAB
     Route: 058

REACTIONS (6)
  - Muscle tightness [Recovering/Resolving]
  - Nightmare [Unknown]
  - Drug effect less than expected [Unknown]
  - Drug ineffective [Recovering/Resolving]
  - Psoriasis [Unknown]
  - Wrong technique in product usage process [Recovering/Resolving]

NARRATIVE: CASE EVENT DATE: 20210505
